FAERS Safety Report 7441609 (Version 9)
Quarter: 2018Q1

REPORT INFORMATION
  Report Type: Report from Study
  Country: JP (occurrence: JP)
  Receive Date: 20100629
  Receipt Date: 20180105
  Transmission Date: 20180509
  Serious: Yes (Hospitalization, Other)
  Sender: FDA-Public Use
  Company Number: JP-ROCHE-685603

PATIENT
  Age: 14 Year
  Sex: Female
  Weight: 69 kg

DRUGS (89)
  1. TOCILIZUMAB. [Suspect]
     Active Substance: TOCILIZUMAB
     Route: 041
     Dates: start: 20090928, end: 20100414
  2. PREDNISOLONE. [Suspect]
     Active Substance: PREDNISOLONE
     Indication: STILL^S DISEASE
     Route: 048
  3. PREDNISOLONE. [Suspect]
     Active Substance: PREDNISOLONE
     Route: 048
     Dates: start: 20090915, end: 20090928
  4. PREDNISOLONE. [Suspect]
     Active Substance: PREDNISOLONE
     Route: 048
     Dates: start: 20091223, end: 20100119
  5. SANDIMMUN [Suspect]
     Active Substance: CYCLOSPORINE
     Route: 042
     Dates: start: 20110628, end: 20110702
  6. SANDIMMUN [Suspect]
     Active Substance: CYCLOSPORINE
     Route: 042
     Dates: start: 20110728, end: 20110801
  7. LIMETHASON [Suspect]
     Active Substance: DEXAMETHASONE PALMITATE
     Dosage: DRUG NAME: LIMETHASON
     Route: 041
     Dates: start: 20110318, end: 20110325
  8. LIMETHASON [Suspect]
     Active Substance: DEXAMETHASONE PALMITATE
     Dosage: DRUG NAME: LIMETHASON
     Route: 041
     Dates: start: 20110628, end: 20110629
  9. LIMETHASON [Suspect]
     Active Substance: DEXAMETHASONE PALMITATE
     Dosage: DRUG NAME: LIMETHASON
     Route: 041
     Dates: start: 20110725, end: 20110725
  10. LONGES [Concomitant]
     Active Substance: LISINOPRIL
     Indication: HYPERTENSION
     Route: 048
     Dates: start: 2008, end: 20090702
  11. TOCILIZUMAB. [Suspect]
     Active Substance: TOCILIZUMAB
     Route: 041
  12. PREDNISOLONE. [Suspect]
     Active Substance: PREDNISOLONE
     Route: 048
     Dates: start: 20090721, end: 20090724
  13. PREDNISOLONE. [Suspect]
     Active Substance: PREDNISOLONE
     Route: 048
     Dates: start: 20090818, end: 20090831
  14. PREDNISOLONE. [Suspect]
     Active Substance: PREDNISOLONE
     Route: 048
     Dates: start: 20100507, end: 20100601
  15. PREDNISOLONE. [Suspect]
     Active Substance: PREDNISOLONE
     Route: 048
     Dates: start: 20100610, end: 20100715
  16. PREDNISOLONE. [Suspect]
     Active Substance: PREDNISOLONE
     Route: 048
  17. SANDIMMUN [Suspect]
     Active Substance: CYCLOSPORINE
     Route: 042
     Dates: start: 20110804, end: 20110804
  18. LIMETHASON [Suspect]
     Active Substance: DEXAMETHASONE PALMITATE
     Dosage: DRUG NAME: LIMETHASON
     Route: 041
     Dates: start: 20110722, end: 20110722
  19. GASTER [Concomitant]
     Active Substance: FAMOTIDINE
     Indication: PROPHYLAXIS AGAINST GASTROINTESTINAL ULCER
     Route: 048
  20. PREDNISOLONE. [Suspect]
     Active Substance: PREDNISOLONE
     Route: 048
     Dates: start: 20091126, end: 20091208
  21. SANDIMMUN [Suspect]
     Active Substance: CYCLOSPORINE
     Route: 042
     Dates: start: 20110727, end: 20110727
  22. NEORAL [Suspect]
     Active Substance: CYCLOSPORINE
     Route: 048
  23. NEORAL [Suspect]
     Active Substance: CYCLOSPORINE
     Route: 048
  24. LIMETHASON [Suspect]
     Active Substance: DEXAMETHASONE PALMITATE
     Dosage: DRUG NAME: LIMETHASON
     Route: 041
     Dates: start: 20100604, end: 20100604
  25. LIMETHASON [Suspect]
     Active Substance: DEXAMETHASONE PALMITATE
     Dosage: DRUG NAME: LIMETHASON
     Route: 041
     Dates: start: 20110627, end: 20110627
  26. LIMETHASON [Suspect]
     Active Substance: DEXAMETHASONE PALMITATE
     Dosage: DRUG NAME: LIMETHASON
     Route: 041
     Dates: start: 20110702, end: 20110702
  27. LIMETHASON [Suspect]
     Active Substance: DEXAMETHASONE PALMITATE
     Dosage: DRUG NAME: LIMETHASON
     Route: 041
     Dates: start: 20110803, end: 20110803
  28. LIMETHASON [Suspect]
     Active Substance: DEXAMETHASONE PALMITATE
     Dosage: DRUG NAME: LIMETHASON
     Route: 041
     Dates: start: 20110804, end: 20110804
  29. NORVASC [Concomitant]
     Active Substance: AMLODIPINE BESYLATE
     Route: 048
     Dates: start: 20090803, end: 20091110
  30. NORVASC [Concomitant]
     Active Substance: AMLODIPINE BESYLATE
     Route: 048
  31. SOLU-CORTEF [Concomitant]
     Active Substance: HYDROCORTISONE SODIUM SUCCINATE
     Route: 042
     Dates: start: 20090914, end: 20090914
  32. PREDNISOLONE. [Suspect]
     Active Substance: PREDNISOLONE
     Route: 048
     Dates: start: 20091111, end: 20091125
  33. PREDNISOLONE. [Suspect]
     Active Substance: PREDNISOLONE
     Route: 048
     Dates: start: 201103, end: 201105
  34. PREDNISOLONE. [Suspect]
     Active Substance: PREDNISOLONE
     Route: 048
     Dates: start: 20110606, end: 201106
  35. SANDIMMUN [Suspect]
     Active Substance: CYCLOSPORINE
     Route: 042
     Dates: start: 20101119, end: 20101123
  36. LIMETHASON [Suspect]
     Active Substance: DEXAMETHASONE PALMITATE
     Dosage: DRUG NAME: LIMETHASON
     Route: 041
     Dates: start: 20101119, end: 20101126
  37. LIMETHASON [Suspect]
     Active Substance: DEXAMETHASONE PALMITATE
     Dosage: DRUG NAME: LIMETHASON
     Route: 041
     Dates: start: 20110530, end: 20110530
  38. LIMETHASON [Suspect]
     Active Substance: DEXAMETHASONE PALMITATE
     Dosage: DRUG NAME: LIMETHASON
     Route: 041
     Dates: start: 20110726, end: 20110802
  39. SOLU-CORTEF [Concomitant]
     Active Substance: HYDROCORTISONE SODIUM SUCCINATE
     Route: 042
     Dates: start: 20090928, end: 20090928
  40. TOCILIZUMAB. [Suspect]
     Active Substance: TOCILIZUMAB
     Route: 041
     Dates: start: 20100520, end: 20100601
  41. PREDNISOLONE. [Suspect]
     Active Substance: PREDNISOLONE
     Route: 048
     Dates: start: 20090703, end: 20090713
  42. PREDNISOLONE. [Suspect]
     Active Substance: PREDNISOLONE
     Route: 048
     Dates: start: 20090901, end: 20090914
  43. PREDNISOLONE. [Suspect]
     Active Substance: PREDNISOLONE
     Route: 048
     Dates: start: 20090929, end: 20091013
  44. PREDNISOLONE. [Suspect]
     Active Substance: PREDNISOLONE
     Route: 048
     Dates: start: 20100317, end: 20100506
  45. PREDNISOLONE. [Suspect]
     Active Substance: PREDNISOLONE
     Route: 048
     Dates: start: 20100716, end: 20100813
  46. SANDIMMUN [Suspect]
     Active Substance: CYCLOSPORINE
     Route: 042
     Dates: start: 20110722, end: 20110726
  47. NEORAL [Suspect]
     Active Substance: CYCLOSPORINE
     Route: 048
  48. LIMETHASON [Suspect]
     Active Substance: DEXAMETHASONE PALMITATE
     Dosage: DRUG NAME: LIMETHASON
     Route: 041
     Dates: start: 20090729, end: 20090803
  49. LIMETHASON [Suspect]
     Active Substance: DEXAMETHASONE PALMITATE
     Dosage: DRUG NAME: LIMETHASON
     Route: 041
     Dates: start: 20110630, end: 20110630
  50. LIMETHASON [Suspect]
     Active Substance: DEXAMETHASONE PALMITATE
     Dosage: DRUG NAME: LIMETHASON
     Route: 041
     Dates: start: 20110805, end: 20110805
  51. ONEALFA [Concomitant]
     Active Substance: ALFACALCIDOL
     Indication: OSTEOPOROSIS PROPHYLAXIS
     Route: 048
  52. LONGES [Concomitant]
     Active Substance: LISINOPRIL
     Route: 048
  53. TOCILIZUMAB. [Suspect]
     Active Substance: TOCILIZUMAB
     Route: 041
     Dates: start: 20100614, end: 20100629
  54. TOCILIZUMAB. [Suspect]
     Active Substance: TOCILIZUMAB
     Route: 041
     Dates: start: 20100715, end: 2011
  55. PREDNISOLONE. [Suspect]
     Active Substance: PREDNISOLONE
     Route: 048
     Dates: start: 20090804, end: 20090814
  56. PREDNISOLONE. [Suspect]
     Active Substance: PREDNISOLONE
     Route: 048
     Dates: start: 20091209, end: 20091222
  57. PREDNISOLONE. [Suspect]
     Active Substance: PREDNISOLONE
     Route: 048
     Dates: start: 20100218, end: 20100316
  58. PREDNISOLONE. [Suspect]
     Active Substance: PREDNISOLONE
     Route: 048
     Dates: start: 20101127, end: 201103
  59. SANDIMMUN [Suspect]
     Active Substance: CYCLOSPORINE
     Route: 042
     Dates: start: 20110318, end: 20110325
  60. SANDIMMUN [Suspect]
     Active Substance: CYCLOSPORINE
     Route: 042
     Dates: start: 20110627, end: 20110627
  61. NEORAL [Suspect]
     Active Substance: CYCLOSPORINE
     Route: 048
     Dates: start: 20090818, end: 20090928
  62. NEORAL [Suspect]
     Active Substance: CYCLOSPORINE
     Route: 048
     Dates: start: 20101124, end: 20101125
  63. LIMETHASON [Suspect]
     Active Substance: DEXAMETHASONE PALMITATE
     Indication: STILL^S DISEASE
     Dosage: DRUG NAME: LIMETHASON
     Route: 041
     Dates: start: 20100601, end: 20100603
  64. LIMETHASON [Suspect]
     Active Substance: DEXAMETHASONE PALMITATE
     Dosage: DRUG NAME: LIMETHASON
     Route: 041
     Dates: start: 20110806, end: 20110806
  65. NORVASC [Concomitant]
     Active Substance: AMLODIPINE BESYLATE
     Indication: HYPERTENSION
     Route: 048
     Dates: start: 20090719, end: 20090802
  66. TOCILIZUMAB. [Suspect]
     Active Substance: TOCILIZUMAB
     Indication: STILL^S DISEASE
     Route: 041
     Dates: start: 20090817, end: 20090831
  67. TOCILIZUMAB. [Suspect]
     Active Substance: TOCILIZUMAB
     Route: 041
     Dates: start: 20090914, end: 20090914
  68. TOCILIZUMAB. [Suspect]
     Active Substance: TOCILIZUMAB
     Route: 041
     Dates: start: 20100506, end: 20100506
  69. PREDNISOLONE. [Suspect]
     Active Substance: PREDNISOLONE
     Route: 048
     Dates: start: 20100120, end: 20100217
  70. SANDIMMUN [Suspect]
     Active Substance: CYCLOSPORINE
     Indication: STILL^S DISEASE
     Dosage: FORM: INJECTIONROUTE: INTRAVENOUS (NOT OTHERWISE SPECIFIED)
     Route: 042
     Dates: start: 20090726, end: 20090808
  71. SANDIMMUN [Suspect]
     Active Substance: CYCLOSPORINE
     Route: 042
     Dates: start: 20100601, end: 20100602
  72. SANDIMMUN [Suspect]
     Active Substance: CYCLOSPORINE
     Route: 042
     Dates: start: 20100603, end: 20100606
  73. SANDIMMUN [Suspect]
     Active Substance: CYCLOSPORINE
     Route: 042
     Dates: start: 20110530, end: 20110603
  74. SANDIMMUN [Suspect]
     Active Substance: CYCLOSPORINE
     Route: 042
     Dates: start: 20110802, end: 20110803
  75. NEORAL [Suspect]
     Active Substance: CYCLOSPORINE
     Route: 048
  76. LIMETHASON [Suspect]
     Active Substance: DEXAMETHASONE PALMITATE
     Dosage: DRUG NAME: LIMETHASON
     Route: 041
     Dates: start: 20090725, end: 20090728
  77. TOCILIZUMAB. [Suspect]
     Active Substance: TOCILIZUMAB
     Route: 041
  78. TOCILIZUMAB. [Suspect]
     Active Substance: TOCILIZUMAB
     Route: 041
  79. PREDNISOLONE. [Suspect]
     Active Substance: PREDNISOLONE
     Route: 048
     Dates: start: 20090815, end: 20090817
  80. PREDNISOLONE. [Suspect]
     Active Substance: PREDNISOLONE
     Route: 048
     Dates: start: 20091014, end: 20091028
  81. PREDNISOLONE. [Suspect]
     Active Substance: PREDNISOLONE
     Route: 048
     Dates: start: 20091029, end: 20091110
  82. PREDNISOLONE. [Suspect]
     Active Substance: PREDNISOLONE
     Route: 048
     Dates: start: 20100814, end: 201011
  83. PREDNISOLONE. [Suspect]
     Active Substance: PREDNISOLONE
     Route: 048
     Dates: start: 20110703, end: 201107
  84. NEORAL [Suspect]
     Active Substance: CYCLOSPORINE
     Indication: STILL^S DISEASE
     Route: 048
     Dates: start: 20090809, end: 20090817
  85. LIMETHASON [Suspect]
     Active Substance: DEXAMETHASONE PALMITATE
     Dosage: DRUG NAME: LIMETHASON
     Route: 041
     Dates: start: 20100605, end: 20100606
  86. LIMETHASON [Suspect]
     Active Substance: DEXAMETHASONE PALMITATE
     Dosage: DRUG NAME: LIMETHASON
     Route: 041
     Dates: start: 20110531, end: 20110605
  87. LIMETHASON [Suspect]
     Active Substance: DEXAMETHASONE PALMITATE
     Dosage: DRUG NAME: LIMETHASON
     Route: 041
     Dates: start: 20110701, end: 20110701
  88. LIMETHASON [Suspect]
     Active Substance: DEXAMETHASONE PALMITATE
     Dosage: DRUG NAME: LIMETHASON
     Route: 041
     Dates: start: 20110723, end: 20110724
  89. ATARAX-P [Concomitant]
     Active Substance: HYDROXYZINE HYDROCHLORIDE
     Route: 042
     Dates: start: 20090914, end: 20090914

REACTIONS (8)
  - Impaired healing [Recovered/Resolved]
  - Lip pruritus [Unknown]
  - Subcutaneous abscess [Recovered/Resolved]
  - Thermal burn [Recovered/Resolved]
  - Histiocytosis haematophagic [Recovered/Resolved]
  - Blister [Unknown]
  - Disseminated intravascular coagulation [Recovered/Resolved]
  - Hypertension [Not Recovered/Not Resolved]

NARRATIVE: CASE EVENT DATE: 20090817
